FAERS Safety Report 23057377 (Version 1)
Quarter: 2023Q4

REPORT INFORMATION
  Report Type: Spontaneous
  Country: US (occurrence: US)
  Receive Date: 20231012
  Receipt Date: 20231012
  Transmission Date: 20240110
  Serious: Yes (Hospitalization)
  Sender: FDA-Public Use
  Company Number: US-TEVA-2023-US-2933028

PATIENT
  Age: 46 Year
  Sex: Male

DRUGS (3)
  1. IVERMECTIN [Suspect]
     Active Substance: IVERMECTIN
     Indication: Acarodermatitis
     Dosage: FOR 6-8 WEEKS
     Route: 065
  2. OXYTETRACYCLINE [Suspect]
     Active Substance: OXYTETRACYCLINE
     Indication: Acarodermatitis
     Dosage: FOR 6-8 WEEKS
     Route: 065
  3. ALBENDAZOLE [Suspect]
     Active Substance: ALBENDAZOLE
     Indication: Acarodermatitis
     Dosage: FOR 6-8 WEEKS
     Route: 065

REACTIONS (2)
  - Neurotoxicity [Recovering/Resolving]
  - Intentional product misuse [Unknown]
